FAERS Safety Report 25031752 (Version 1)
Quarter: 2025Q1

REPORT INFORMATION
  Report Type: Spontaneous
  Country: US (occurrence: None)
  Receive Date: 20250302
  Receipt Date: 20250302
  Transmission Date: 20250408
  Serious: Yes (Other)
  Sender: FDA-CTU
  Company Number: None

PATIENT
  Age: 42 Year
  Sex: Female
  Weight: 69.75 kg

DRUGS (2)
  1. NITROGLYCERIN [Suspect]
     Active Substance: NITROGLYCERIN
     Indication: Angiopathy
     Dosage: 1 PATCH  EVERY 6 HOURS TOPICAL ?
     Route: 061
     Dates: start: 20170822, end: 20170822
  2. VITAMIN D [Concomitant]
     Active Substance: VITAMIN D NOS

REACTIONS (1)
  - Burning sensation [None]

NARRATIVE: CASE EVENT DATE: 20170822
